FAERS Safety Report 13652109 (Version 1)
Quarter: 2017Q2

REPORT INFORMATION
  Report Type: Report from Study
  Country: BE (occurrence: BE)
  Receive Date: 20170614
  Receipt Date: 20170614
  Transmission Date: 20170830
  Serious: Yes (Hospitalization)
  Sender: FDA-Public Use
  Company Number: BE-AMGEN-BELCT2014023307

PATIENT
  Age: 78 Year
  Sex: Female
  Weight: 59.5 kg

DRUGS (24)
  1. HARTMANN                           /00490001/ [Concomitant]
     Dosage: UNK
     Route: 042
     Dates: start: 20140314, end: 20140314
  2. PACLITAXEL. [Concomitant]
     Active Substance: PACLITAXEL
     Dosage: UNK
     Route: 042
     Dates: start: 20131231
  3. PHENERGAN [Concomitant]
     Active Substance: PROMETHAZINE HYDROCHLORIDE
     Dosage: 50 MG, UNK
     Route: 030
     Dates: start: 20131231
  4. LITICAN                            /00690801/ [Concomitant]
     Active Substance: ALIZAPRIDE
     Dosage: 50 MG, UNK
     Route: 048
     Dates: start: 20140102
  5. LASIX [Concomitant]
     Active Substance: FUROSEMIDE
     Dosage: 80 MG, UNK
     Route: 042
     Dates: start: 20140316, end: 20140318
  6. LORMETAZEPAM [Concomitant]
     Active Substance: LORMETAZEPAM
     Dosage: 2 MG, UNK
     Route: 048
     Dates: start: 20140313, end: 20140401
  7. ASAFLOW [Concomitant]
     Active Substance: ASPIRIN
     Dosage: 80 MG, UNK
     Route: 048
     Dates: start: 2008, end: 20140601
  8. HEPARINE                           /00027701/ [Concomitant]
     Active Substance: HEPARIN SODIUM
     Dosage: 3 UNK, UNK
     Route: 042
     Dates: start: 20140321, end: 20140321
  9. DEXAMETHASONE. [Concomitant]
     Active Substance: DEXAMETHASONE
     Dosage: 20 MG, UNK
     Route: 048
     Dates: start: 20131230, end: 20140516
  10. OMEPRAZOLE. [Concomitant]
     Active Substance: OMEPRAZOLE
     Dosage: 40 MG, UNK
     Route: 048
     Dates: start: 2003, end: 20140601
  11. ZANTAC [Concomitant]
     Active Substance: RANITIDINE HYDROCHLORIDE
     Dosage: UNK
     Route: 042
     Dates: start: 20131231, end: 20140322
  12. CARBOPLATIN. [Concomitant]
     Active Substance: CARBOPLATIN
     Dosage: UNK
     Route: 042
     Dates: start: 20131231
  13. CLOZAN [Concomitant]
     Dosage: 5 MG, UNK
     Route: 048
     Dates: start: 2013, end: 20140601
  14. ZYRTEC [Concomitant]
     Active Substance: CETIRIZINE HYDROCHLORIDE
     Dosage: 10 MG, UNK
     Route: 048
     Dates: start: 20131230, end: 20140516
  15. MOVICOL [Concomitant]
     Active Substance: POLYETHYLENE GLYCOL 3350\POTASSIUM CHLORIDE\SODIUM BICARBONATE\SODIUM CHLORIDE
     Dosage: 1 UNK, UNK
     Route: 048
     Dates: start: 20140401, end: 20140403
  16. CLEXANE [Concomitant]
     Active Substance: ENOXAPARIN SODIUM
     Dosage: 40 MG, UNK
     Route: 058
     Dates: start: 20140313, end: 20140412
  17. CEFAZOLINE MYLAN [Concomitant]
     Active Substance: CEFAZOLIN SODIUM
     Dosage: 2 G, UNK
     Route: 042
     Dates: start: 20140314, end: 20140314
  18. FLAGYL [Concomitant]
     Active Substance: METRONIDAZOLE\METRONIDAZOLE HYDROCHLORIDE
     Dosage: 1500 MG, UNK
     Route: 042
     Dates: start: 20140314, end: 20140314
  19. XANAX [Concomitant]
     Active Substance: ALPRAZOLAM
     Dosage: 1 MG, UNK
     Route: 048
     Dates: start: 20140314, end: 20140314
  20. AMG 386 [Suspect]
     Active Substance: TREBANANIB
     Indication: OVARIAN CANCER
     Dosage: UNK
     Route: 065
     Dates: start: 20131231
  21. ALDACTAZINE [Concomitant]
     Active Substance: ALTHIAZIDE\SPIRONOLACTONE
     Dosage: UNK
     Route: 048
     Dates: start: 2008
  22. ALOXI [Concomitant]
     Active Substance: PALONOSETRON HYDROCHLORIDE
     Dosage: 250 MUG, UNK
     Route: 042
     Dates: start: 20131231, end: 20140516
  23. MOVIPREP                           /06299301/ [Concomitant]
     Dosage: 1 UNK, UNK
     Route: 048
     Dates: start: 20140313, end: 20140313
  24. PARACETAMOL [Concomitant]
     Active Substance: ACETAMINOPHEN
     Dosage: 750MG-1 G, UNK
     Route: 042
     Dates: start: 20140315, end: 20140316

REACTIONS (1)
  - Ascites [Recovered/Resolved]

NARRATIVE: CASE EVENT DATE: 20140331
